APPROVED DRUG PRODUCT: MIGERGOT
Active Ingredient: CAFFEINE; ERGOTAMINE TARTRATE
Strength: 100MG;2MG
Dosage Form/Route: SUPPOSITORY;RECTAL
Application: A086557 | Product #001
Applicant: COSETTE PHARMACEUTICALS INC
Approved: Oct 4, 1983 | RLD: Yes | RS: Yes | Type: RX